FAERS Safety Report 14272351 (Version 1)
Quarter: 2017Q4

REPORT INFORMATION
  Report Type: Report from Study
  Country: US (occurrence: US)
  Receive Date: 20171211
  Receipt Date: 20171211
  Transmission Date: 20180321
  Serious: Yes (Hospitalization)
  Sender: FDA-Public Use
  Company Number: US-EXELIXIS-XL18417011584

PATIENT
  Age: 59 Year
  Sex: Female

DRUGS (2)
  1. XL184 [Suspect]
     Active Substance: CABOZANTINIB
     Dosage: 40 MG, QD
     Route: 048
     Dates: end: 20170913
  2. XL184 [Suspect]
     Active Substance: CABOZANTINIB
     Indication: ENDOMETRIAL STROMAL SARCOMA
     Dosage: 60 MG, QD
     Route: 048
     Dates: start: 20170518

REACTIONS (3)
  - Muscular weakness [Recovered/Resolved]
  - Supraventricular tachycardia [Recovered/Resolved]
  - Dehydration [Recovered/Resolved]

NARRATIVE: CASE EVENT DATE: 20170918
